FAERS Safety Report 10209762 (Version 1)
Quarter: 2014Q2

REPORT INFORMATION
  Report Type: Spontaneous
  Country: US (occurrence: US)
  Receive Date: 20140602
  Receipt Date: 20140602
  Transmission Date: 20141212
  Serious: Yes (Other)
  Sender: FDA-Public Use
  Company Number: US-BRISTOL-MYERS SQUIBB COMPANY-20814240

PATIENT
  Sex: 0

DRUGS (1)
  1. BYETTA [Suspect]
     Indication: DIABETES MELLITUS

REACTIONS (2)
  - Leukoplakia oral [Unknown]
  - Dysplasia [Unknown]
